FAERS Safety Report 5285807-3 (Version None)
Quarter: 2007Q1

REPORT INFORMATION
  Report Type: 
  Country: None (occurrence: None)
  Receive Date: 20070116
  Receipt Date: 20061016
  Transmission Date: 20070707
  Serious: No
  Sender: FDA-Public Use
  Company Number: 2006SP003683

PATIENT
  Age: 35 Year
  Sex: Female
  Weight: 52.6173 kg

DRUGS (4)
  1. LUNESTA [Suspect]
     Indication: INSOMNIA
     Dosage: SEE IMAGE
     Route: 048
     Dates: start: 20060101, end: 20060101
  2. LUNESTA [Suspect]
     Indication: INSOMNIA
     Dosage: SEE IMAGE
     Route: 048
     Dates: start: 20060926, end: 20060927
  3. DOXYCYCLINE [Concomitant]
  4. ORAL CONTRACEPTIVE NOS [Concomitant]

REACTIONS (1)
  - HERPES ZOSTER [None]
